FAERS Safety Report 4466033-4 (Version None)
Quarter: 2004Q3

REPORT INFORMATION
  Report Type: 
  Country: None (occurrence: None)
  Receive Date: 20040930
  Receipt Date: 20040930
  Transmission Date: 20050211
  Serious: Yes (Hospitalization)
  Sender: FDA-Public Use
  Company Number: None

PATIENT
  Age: 71 Year
  Weight: 89 kg

DRUGS (4)
  1. METHYLPREDNISOLONE [Suspect]
     Indication: ASTHMA
     Dosage: 40MG  Q6H  INTRAVENOUS
     Route: 042
     Dates: start: 20040824, end: 20040827
  2. METHYLPREDNISOLONE [Suspect]
     Indication: CHRONIC OBSTRUCTIVE AIRWAYS DISEASE
     Dosage: 40MG  Q6H  INTRAVENOUS
     Route: 042
     Dates: start: 20040824, end: 20040827
  3. PREDNISONE [Suspect]
     Indication: ASTHMA
     Dosage: 60 MG TO  TAPER TO 5MG  ORAL
     Route: 048
     Dates: start: 20040827, end: 20040830
  4. PREDNISONE [Suspect]
     Indication: CHRONIC OBSTRUCTIVE AIRWAYS DISEASE
     Dosage: 60 MG TO  TAPER TO 5MG  ORAL
     Route: 048
     Dates: start: 20040827, end: 20040830

REACTIONS (1)
  - DIABETES MELLITUS [None]
